FAERS Safety Report 4890446-X (Version None)
Quarter: 2005Q4

REPORT INFORMATION
  Report Type: 
  Country: None (occurrence: None)
  Receive Date: 20051216
  Receipt Date: 20051006
  Transmission Date: 20060501
  Serious: No
  Sender: FDA-Public Use
  Company Number: BDI-007637

PATIENT
  Age: 52 Year
  Sex: Male
  Weight: 119 kg

DRUGS (7)
  1. MULTIHANCE [Suspect]
     Indication: ASTHENIA
     Dosage: 21 ML ONCE IV
     Route: 042
     Dates: start: 20051005, end: 20051005
  2. MULTIHANCE [Suspect]
     Indication: NUCLEAR MAGNETIC RESONANCE IMAGING BRAIN
     Dosage: 21 ML ONCE IV
     Route: 042
     Dates: start: 20051005, end: 20051005
  3. LEXAPRO [Concomitant]
  4. TRAZODONE [Concomitant]
  5. DIOVAN [Concomitant]
  6. AGGRENOX [Concomitant]
  7. ATIVAN [Concomitant]

REACTIONS (1)
  - NAUSEA [None]
